FAERS Safety Report 9384165 (Version 2)
Quarter: 2013Q3

REPORT INFORMATION
  Report Type: Spontaneous
  Country: CN (occurrence: CN)
  Receive Date: 20130705
  Receipt Date: 20130716
  Transmission Date: 20140515
  Serious: Yes (Hospitalization, Other)
  Sender: FDA-Public Use
  Company Number: CN-009507513-1307CHN001532

PATIENT
  Age: 82 Year
  Sex: Female
  Weight: 55 kg

DRUGS (3)
  1. TIENAM [Suspect]
     Indication: INFECTION
     Dosage: 1 G, QID
     Route: 042
     Dates: start: 20120516, end: 20120516
  2. TIENAM [Suspect]
     Dosage: UNK
     Route: 041
     Dates: start: 20120513, end: 20120515
  3. AMBROXOL [Concomitant]
     Dosage: UNK
     Route: 042
     Dates: start: 20120516, end: 20120516

REACTIONS (4)
  - Hospitalisation [Not Recovered/Not Resolved]
  - Rash [Recovering/Resolving]
  - Pruritus [Recovering/Resolving]
  - Steroid therapy [Unknown]
